FAERS Safety Report 9301921 (Version 2)
Quarter: 2014Q1

REPORT INFORMATION
  Report Type: Spontaneous
  Country: US (occurrence: US)
  Receive Date: 20130521
  Receipt Date: 20140207
  Transmission Date: 20141002
  Serious: Yes (Other)
  Sender: FDA-Public Use
  Company Number: US-PFIZER INC-2013080995

PATIENT
  Age: 61 Year
  Sex: Female

DRUGS (39)
  1. EFFEXOR XR [Suspect]
     Indication: DEPRESSION
     Dosage: 37.5 MG, 2X/DAY
     Route: 048
     Dates: start: 201102
  2. EFFEXOR XR [Suspect]
     Indication: FIBROMYALGIA
  3. VENLAFAXINE HCL [Suspect]
     Dosage: 37.5 MG, 2X/DAY
     Dates: start: 201105, end: 201107
  4. ULTRAM [Suspect]
     Indication: BONE PAIN
     Dosage: 50 MG, 4X/DAY AS NEEDED
     Route: 048
     Dates: start: 201109, end: 201304
  5. ULTRAM [Suspect]
     Indication: PAIN
  6. ALBUTEROL SULFATE [Concomitant]
     Dosage: 1/2 VIAL AS DIRECTED EVERY FOUR HOURS WHILE AWAKE AS NEEDED
  7. AMBIEN [Concomitant]
     Dosage: 10 MG, TAKE 1/2 TABLET BY MOUTH AT BEDTIME
     Route: 048
  8. ASPIR-81 [Concomitant]
     Dosage: 81 MG, 1X/DAY
     Route: 048
  9. ATROVENT [Concomitant]
     Dosage: 2 PUFF USING INHALER EVERY FOUR HOURS AS NEEDED
     Route: 055
  10. CALCIUM 500 WITH D [Concomitant]
     Indication: SUPPLEMENTATION THERAPY
     Dosage: 1 DF, 2X/DAY
     Route: 048
  11. CANASA [Concomitant]
     Dosage: 1000 MG, INSERT 1-2 SUPPOSITORY ONCE A DAY AS NEEDED
  12. CEVIMELINE [Concomitant]
     Dosage: 30 MG, 2X/DAY
     Route: 048
  13. EVISTA [Concomitant]
     Dosage: 60 MG, 1X/DAY
     Route: 048
  14. FOLIC ACID-VIT B6-VIT B12 [Concomitant]
     Dosage: 1 DF, 1X/DAY
     Route: 048
  15. GAVISCON EXTRA STRENGTH [Concomitant]
     Dosage: 160-105 MG, 1 TABLET BY MOUTH FOUR TIMES A DAY AS NEEDED CHEW ONE TAB 30 MIN BEFORE MEALS
     Route: 048
  16. HYDROCORTISONE [Concomitant]
     Dosage: A SMALL AMOUNT TO AFFECTED AREA TWICE A DAY
  17. IPRATROPIUM BROMIDE [Concomitant]
     Dosage: 1 VIAL AS DIRECTED EVERY FOUR TO SIX HOURS MIX WITH ALBUTEROL SOLUTION
     Route: 055
  18. ISOSORBIDE MONONITRATE [Concomitant]
     Dosage: 30 MG, 1X/DAY
     Route: 048
  19. LIDOCAINE [Concomitant]
     Dosage: 1 PATCH TO SKIN EVERY TWELVE HOURS APPLY PATCH ON 12 HOURS, OFF 12 HOURS
  20. LUMIGAN [Concomitant]
     Dosage: 1 DROP INTO BOTH EYES AT BEDTIME
  21. ALPRAZOLAM [Concomitant]
     Dosage: 1 MG, 2X/DAY AS NEEDED
     Route: 048
  22. ASMANEX TWISTHALER [Concomitant]
     Dosage: 1 PUFF  ONCE A DAY
     Route: 055
  23. CALCIUM W/MAGNESIUM [Concomitant]
     Dosage: TAKE 1 TABLESPOON SUBLINGUALLY ONCE A DAY
     Route: 060
  24. IPRATROPIUM-ALBUTEROL [Concomitant]
     Indication: BRONCHITIS
     Dosage: INHALE 1 VIAL AS DIRECTED EVERY FOUR TO SIX HOURS WHILE AWAKE AS NEEDED
  25. IPRATROPIUM-ALBUTEROL [Concomitant]
     Indication: CHRONIC OBSTRUCTIVE PULMONARY DISEASE
  26. NEXIUM [Concomitant]
     Dosage: 40 MG, 1X/DAY
     Route: 048
  27. NITROSTAT [Concomitant]
     Indication: CHEST PAIN
     Dosage: 0.4 MG, AS NEEDED MAY REPEAT EVERY 5 MIN
     Route: 060
  28. ORPHENADRINE CITRATE [Concomitant]
     Indication: MUSCLE SPASMS
     Dosage: 100 MG, TWICE A DAY AS NEEDED PRN
     Route: 048
  29. OXYCODONE [Concomitant]
     Indication: PAIN
     Dosage: 5 MG, 3X/DAY AS NEEDED
     Route: 048
  30. OXYCONTIN [Concomitant]
     Dosage: 40 MG, 2X/DAY
     Route: 048
  31. PLAQUENIL [Concomitant]
     Dosage: 200 MG, 2X/DAY
     Route: 048
  32. PREDNISONE [Concomitant]
     Indication: CONDITION AGGRAVATED
     Dosage: 2.5 MG, 1X/DAY
     Route: 048
  33. PREDNISONE [Concomitant]
     Dosage: 5 MG, 1X/DAY WITH FOOD
     Route: 048
  34. PREDNISONE [Concomitant]
     Dosage: TAKE 1-2 TABLET BY MOUTH ONCE A DAY AS DIRECTED
     Route: 048
  35. PROAIR HFA [Concomitant]
     Dosage: 90 UG, 1-2 PUFF EVERY FOUR HOURS AS DIRECTED
     Route: 055
  36. RESTASIS [Concomitant]
     Dosage: ONE DROP IN BOTH EYES TWICE DAILY
     Route: 047
  37. RIZATRIPTAN [Concomitant]
     Indication: HEADACHE
     Dosage: 10 MG, ONCE A DAY AS NEEDED
     Route: 048
  38. SENNA LAX [Concomitant]
     Dosage: (8.6 MG) 1-2 TABLETS QHS
     Route: 048
  39. TRAZODONE [Concomitant]
     Dosage: 300 MG, 1X/DAY
     Route: 048

REACTIONS (8)
  - Depression suicidal [Recovered/Resolved]
  - Bipolar disorder [Unknown]
  - Confusional state [Recovered/Resolved]
  - Incontinence [Recovering/Resolving]
  - Communication disorder [Recovered/Resolved]
  - Agitation [Unknown]
  - Osteoarthritis [Unknown]
  - Asthma [Unknown]
